FAERS Safety Report 18750265 (Version 2)
Quarter: 2021Q1

REPORT INFORMATION
  Report Type: Spontaneous
  Country: SI (occurrence: SI)
  Receive Date: 20210118
  Receipt Date: 20210201
  Transmission Date: 20210419
  Serious: Yes (Other)
  Sender: FDA-Public Use
  Company Number: SI-JNJFOC-20210120735

PATIENT
  Age: 83 Year
  Sex: Female

DRUGS (6)
  1. SINVACOR [Concomitant]
     Active Substance: SIMVASTATIN
     Dosage: 20 MG
  2. ANALGIN BP [Concomitant]
  3. LEKADOL [Concomitant]
     Active Substance: ACETAMINOPHEN
  4. PRENEWEL [Concomitant]
     Active Substance: INDAPAMIDE\PERINDOPRIL ERBUMINE
  5. RIVAROXABAN [Suspect]
     Active Substance: RIVAROXABAN
     Indication: PRODUCT USED FOR UNKNOWN INDICATION
     Dosage: UNK
     Route: 048
     Dates: start: 202009
  6. APIXABAN [Suspect]
     Active Substance: APIXABAN
     Indication: PRODUCT USED FOR UNKNOWN INDICATION
     Route: 065

REACTIONS (4)
  - Fall [Unknown]
  - COVID-19 pneumonia [Unknown]
  - Alopecia [Recovered/Resolved]
  - Radius fracture [Unknown]

NARRATIVE: CASE EVENT DATE: 202009
